FAERS Safety Report 25220757 (Version 3)
Quarter: 2025Q2

REPORT INFORMATION
  Report Type: Spontaneous
  Country: AR (occurrence: AR)
  Receive Date: 20250421
  Receipt Date: 20250603
  Transmission Date: 20250717
  Serious: Yes (Life-Threatening)
  Sender: NOVARTIS
  Company Number: AR-002147023-NVSC2025AR064789

PATIENT
  Sex: Female
  Weight: 60 kg

DRUGS (10)
  1. GLIVEC [Suspect]
     Active Substance: IMATINIB MESYLATE
     Indication: Chronic myeloid leukaemia
     Dosage: 200 MG, QD (2X 100 MG)
     Route: 065
     Dates: start: 201111
  2. GLIVEC [Suspect]
     Active Substance: IMATINIB MESYLATE
     Dosage: 400 MG, QD (400MG 5 MONTHS DUE TO LOSS GREATER MOLECULAR RESPONSE 0.8%)
     Route: 065
     Dates: start: 201111, end: 2018
  3. GLIVEC [Suspect]
     Active Substance: IMATINIB MESYLATE
     Route: 065
  4. GLIVEC [Suspect]
     Active Substance: IMATINIB MESYLATE
     Route: 065
  5. GLIVEC [Suspect]
     Active Substance: IMATINIB MESYLATE
     Dosage: 200 MG DAILY
     Route: 048
     Dates: start: 202105
  6. GLIVEC [Suspect]
     Active Substance: IMATINIB MESYLATE
     Route: 065
     Dates: start: 2011
  7. NILOTINIB [Suspect]
     Active Substance: NILOTINIB
     Indication: Product used for unknown indication
     Dosage: 600 MG, QD
     Route: 065
  8. DASATINIB [Suspect]
     Active Substance: DASATINIB
     Indication: Product used for unknown indication
     Dosage: 100 MG, QD
     Route: 065
  9. DASATINIB [Suspect]
     Active Substance: DASATINIB
     Route: 065
  10. IMATINIB MESYLATE [Suspect]
     Active Substance: IMATINIB MESYLATE
     Indication: Product used for unknown indication
     Route: 065

REACTIONS (7)
  - Loss of therapeutic response [Unknown]
  - Drug intolerance [Unknown]
  - Vision blurred [Unknown]
  - Gastrointestinal disorder [Unknown]
  - Asthenia [Unknown]
  - Gene mutation [Unknown]
  - Laboratory test abnormal [Unknown]
